FAERS Safety Report 24652580 (Version 1)
Quarter: 2024Q4

REPORT INFORMATION
  Report Type: Spontaneous
  Country: US (occurrence: None)
  Receive Date: 20241122
  Receipt Date: 20241122
  Transmission Date: 20250114
  Serious: Yes (Hospitalization)
  Sender: Public
  Company Number: None

PATIENT
  Age: 73 Year
  Sex: Male

DRUGS (1)
  1. SPIRONOLACTONE [Suspect]
     Active Substance: SPIRONOLACTONE
     Indication: Cardiomyopathy
     Dosage: 1.00 UNK - UNKNOWN?
     Route: 048
     Dates: start: 20240919, end: 20240920

REACTIONS (1)
  - Hypotension [None]

NARRATIVE: CASE EVENT DATE: 20240920
